FAERS Safety Report 8879200 (Version 1)
Quarter: 2012Q4

REPORT INFORMATION
  Report Type: Spontaneous
  Country: CA (occurrence: None)
  Receive Date: 20121026
  Receipt Date: 20121026
  Transmission Date: 20130627
  Serious: Yes (Death)
  Sender: FDA-Public Use
  Company Number: B0839886A

PATIENT
  Age: 50 Year
  Sex: Male

DRUGS (6)
  1. LAMIVUDINE [Suspect]
     Indication: PROPHYLAXIS
  2. RITUXIMAB [Concomitant]
  3. CYCLOPHOSPHAMIDE [Concomitant]
  4. PREDNISOLONE [Concomitant]
  5. DOXORUBICIN [Concomitant]
  6. VINCRISTINE [Concomitant]

REACTIONS (4)
  - Hepatitis B [None]
  - Abdominal pain [None]
  - Confusional state [None]
  - Hepatic failure [None]
